FAERS Safety Report 21811346 (Version 1)
Quarter: 2023Q1

REPORT INFORMATION
  Report Type: Spontaneous
  Country: US (occurrence: None)
  Receive Date: 20230102
  Receipt Date: 20230102
  Transmission Date: 20230418
  Serious: Yes (Other)
  Sender: FDA-Public Use
  Company Number: None

PATIENT
  Age: 48 Year
  Sex: Female
  Weight: 94.5 kg

DRUGS (8)
  1. .DELTA.8-TETRAHYDROCANNABINOL\HERBALS [Suspect]
     Active Substance: .DELTA.8-TETRAHYDROCANNABINOL\HERBALS
     Indication: Pain
     Dosage: OTHER QUANTITY : 1 GUMMIE;?FREQUENCY : DAILY;?
     Route: 048
     Dates: start: 20221229, end: 20230101
  2. LDN for long covid and SIBO [Concomitant]
  3. ESTRADIOL [Concomitant]
     Active Substance: ESTRADIOL
  4. ARMOUR THYROID [Concomitant]
     Active Substance: THYROID, PORCINE
  5. MELOXICAM [Concomitant]
     Active Substance: MELOXICAM
  6. TOPROL XL [Concomitant]
     Active Substance: METOPROLOL SUCCINATE
  7. EMGALITY [Concomitant]
     Active Substance: GALCANEZUMAB-GNLM
  8. BUPROPION [Concomitant]
     Active Substance: BUPROPION

REACTIONS (9)
  - Mental status changes [None]
  - Dysarthria [None]
  - Dizziness [None]
  - Dizziness [None]
  - Impaired driving ability [None]
  - Thinking abnormal [None]
  - Transient ischaemic attack [None]
  - Memory impairment [None]
  - Loss of consciousness [None]

NARRATIVE: CASE EVENT DATE: 20221229
